FAERS Safety Report 5609651-X (Version None)
Quarter: 2008Q1

REPORT INFORMATION
  Report Type: 
  Country: None (occurrence: None)
  Receive Date: 20080131
  Receipt Date: 20080124
  Transmission Date: 20080703
  Serious: Yes (Other)
  Sender: FDA-Public Use
  Company Number: B0477391A

PATIENT
  Age: 38 Year
  Sex: Male

DRUGS (9)
  1. PAXIL [Suspect]
     Indication: PANIC DISORDER
     Dosage: 10MG PER DAY
     Route: 048
  2. PAXIL [Suspect]
     Dosage: 10MG TWICE PER DAY
     Route: 048
     Dates: start: 20070317, end: 20070525
  3. PAXIL [Suspect]
     Indication: DEPRESSION
     Dosage: 10MG THREE TIMES PER DAY
     Route: 048
     Dates: start: 20070525, end: 20070725
  4. PAXIL [Suspect]
     Dosage: 10MG PER DAY
     Route: 048
     Dates: start: 20070725, end: 20070825
  5. AMOXAN [Concomitant]
     Dates: start: 20070701, end: 20071001
  6. DEPAS [Concomitant]
     Indication: DEPRESSION
     Dosage: 1.5MG PER DAY
     Route: 048
     Dates: start: 20060613, end: 20061122
  7. DEPAS [Concomitant]
     Dosage: 2.5MG PER DAY
     Route: 048
     Dates: start: 20061122, end: 20070317
  8. LUDIOMIL [Concomitant]
     Indication: DEPRESSION
     Dosage: 30MG PER DAY
     Route: 048
     Dates: start: 20060613, end: 20060617
  9. LUDIOMIL [Concomitant]
     Dosage: 30MG PER DAY
     Route: 048
     Dates: start: 20070129, end: 20070317

REACTIONS (3)
  - CONVULSIONS LOCAL [None]
  - NECK PAIN [None]
  - PARAESTHESIA [None]
